FAERS Safety Report 9430908 (Version 1)
Quarter: 2013Q3

REPORT INFORMATION
  Report Type: Report from Study
  Country: US (occurrence: US)
  Receive Date: 20130730
  Receipt Date: 20130730
  Transmission Date: 20140515
  Serious: No
  Sender: FDA-Public Use
  Company Number: US-ABBOTT-13P-163-1107914-00

PATIENT
  Age: 39 Year
  Sex: Female
  Weight: 62.65 kg

DRUGS (4)
  1. NIASPAN (COATED) [Suspect]
     Indication: HIGH DENSITY LIPOPROTEIN DECREASED
     Dosage: AT BEDTIME
     Route: 048
     Dates: start: 200812
  2. NIASPAN (COATED) [Suspect]
     Indication: BLOOD TRIGLYCERIDES INCREASED
  3. NIASPAN (COATED) [Suspect]
     Indication: HIGH DENSITY LIPOPROTEIN INCREASED
  4. NIASPAN (COATED) [Suspect]
     Indication: DRUG INTOLERANCE

REACTIONS (1)
  - Flushing [Recovered/Resolved]
